FAERS Safety Report 9605621 (Version 1)
Quarter: 2013Q4

REPORT INFORMATION
  Report Type: Spontaneous
  Country: US (occurrence: US)
  Receive Date: 20131008
  Receipt Date: 20131008
  Transmission Date: 20140711
  Serious: Yes (Hospitalization, Other)
  Sender: FDA-Public Use
  Company Number: US-PFIZER INC-2013283484

PATIENT
  Sex: Female

DRUGS (3)
  1. LIPITOR [Suspect]
     Dosage: UNK
  2. PREMARIN [Suspect]
     Dosage: UNK
  3. PROTONIX [Suspect]
     Dosage: UNK

REACTIONS (7)
  - Intestinal perforation [Unknown]
  - Renal disorder [Unknown]
  - Sepsis [Unknown]
  - Cerebrovascular accident [Unknown]
  - Deafness unilateral [Unknown]
  - Gait disturbance [Unknown]
  - Memory impairment [Unknown]
